FAERS Safety Report 11948447 (Version 1)
Quarter: 2016Q1

REPORT INFORMATION
  Report Type: Spontaneous
  Country: US (occurrence: US)
  Receive Date: 20160125
  Receipt Date: 20160125
  Transmission Date: 20160526
  Serious: Yes (Hospitalization)
  Sender: FDA-Public Use
  Company Number: US-BIOGEN-2016BI00179313

PATIENT
  Age: 79 Year
  Sex: Female

DRUGS (1)
  1. TECFIDERA [Suspect]
     Active Substance: DIMETHYL FUMARATE
     Indication: MULTIPLE SCLEROSIS
     Route: 065
     Dates: start: 20130612, end: 20160107

REACTIONS (7)
  - Therapeutic response changed [Unknown]
  - Blindness [Unknown]
  - Visual impairment [Unknown]
  - Mobility decreased [Unknown]
  - Blood thyroid stimulating hormone increased [Unknown]
  - Cystitis [Recovered/Resolved]
  - Abasia [Unknown]

NARRATIVE: CASE EVENT DATE: 20160107
